FAERS Safety Report 8840185 (Version 1)
Quarter: 2012Q4

REPORT INFORMATION
  Report Type: 
  Country: BR (occurrence: BR)
  Receive Date: 20121015
  Receipt Date: 20121015
  Transmission Date: 20130627
  Serious: Yes (Other)
  Sender: FDA-Public Use
  Company Number: BR-ASTRAZENECA-2012SE37864

PATIENT
  Age: 68 Year
  Sex: Female
  Weight: 93 kg

DRUGS (8)
  1. ATACAND HCT [Suspect]
     Indication: HYPERTENSION
     Dosage: 16/12.5 MG OD
     Route: 048
  2. CRESTOR [Suspect]
     Indication: BLOOD CHOLESTEROL INCREASED
     Route: 048
     Dates: end: 20120529
  3. CRESTOR [Suspect]
     Indication: BLOOD CHOLESTEROL INCREASED
     Route: 048
     Dates: start: 20120530
  4. SYNTHROID [Concomitant]
     Indication: HYPOTHYROIDISM
     Dosage: UNKNOWN DOSE ONCE DAILY
     Route: 048
  5. NEBILET [Concomitant]
     Indication: HYPERTENSION
     Dosage: UNKNOWN DOSE ONCE DAILY
     Route: 048
  6. ASA PEDIATRIC [Concomitant]
     Dosage: UNKNOWN DOSE TWO TIMES A DAY
     Route: 048
  7. GLIFAGE [Concomitant]
     Indication: DIABETES MELLITUS
     Dosage: UNKNOWN DOSE ONCE DAILY
     Route: 048
     Dates: start: 2011
  8. OMEGA 3 [Concomitant]
     Indication: PROPHYLAXIS
     Dosage: UNKNOWN DOSE ONCE DAILY
     Route: 048
     Dates: start: 201203

REACTIONS (6)
  - Arthritis [Unknown]
  - Thrombocytosis [Unknown]
  - Spinal pain [Unknown]
  - Aspartate aminotransferase increased [Unknown]
  - Hepatic enzyme increased [Unknown]
  - Intentional drug misuse [Not Recovered/Not Resolved]
